FAERS Safety Report 5515311-6 (Version None)
Quarter: 2007Q4

REPORT INFORMATION
  Report Type: 
  Country: None (occurrence: None)
  Receive Date: 20071113
  Receipt Date: 20071019
  Transmission Date: 20080405
  Serious: No
  Sender: FDA-Public Use
  Company Number: US-BOEHRINGER INGELHEIM PHARMACEUTICALS, INC.-2007-BP-20056BP

PATIENT
  Sex: Male

DRUGS (9)
  1. FLOMAX [Suspect]
     Indication: PROSTATOMEGALY
     Dates: start: 20070504, end: 20070607
  2. FLOMAX [Suspect]
     Indication: BENIGN PROSTATIC HYPERPLASIA
  3. ACIPHEX [Concomitant]
  4. VITAMIN TAB [Concomitant]
  5. GLUCOSAMINE SULPHATE [Concomitant]
  6. LIQUID MINERALS [Concomitant]
  7. RED YEAST RICE [Concomitant]
  8. VITAMIN CAP [Concomitant]
  9. DIET SUPPLEMENTS [Concomitant]

REACTIONS (2)
  - HYPOAESTHESIA [None]
  - PARAESTHESIA [None]
